FAERS Safety Report 7145488-0 (Version None)
Quarter: 2010Q4

REPORT INFORMATION
  Report Type: 
  Country: None (occurrence: None)
  Receive Date: 20101208
  Receipt Date: 20101206
  Transmission Date: 20110411
  Serious: Yes (Hospitalization)
  Sender: FDA-Public Use
  Company Number: US-B.I. PHARMACEUTICALS,INC./RIDGEFIELD-2010-BP-13304BP

PATIENT
  Age: 25 Year
  Sex: Female

DRUGS (1)
  1. PRADAXA [Suspect]
     Dosage: 150 MG
     Route: 048

REACTIONS (2)
  - INTERNATIONAL NORMALISED RATIO [None]
  - INTERNATIONAL NORMALISED RATIO INCREASED [None]
